FAERS Safety Report 11235774 (Version 1)
Quarter: 2015Q3

REPORT INFORMATION
  Report Type: Spontaneous
  Country: US (occurrence: US)
  Receive Date: 20150702
  Receipt Date: 20150702
  Transmission Date: 20151125
  Serious: No
  Sender: FDA-Public Use
  Company Number: ALCN2015US004182

PATIENT
  Age: 83 Year
  Sex: Female

DRUGS (2)
  1. SYSTANE ULTRA [Suspect]
     Active Substance: POLYETHYLENE GLYCOL 400\PROPYLENE GLYCOL
     Indication: DRY EYE
     Dosage: 1 GTT, QID
     Route: 047
     Dates: start: 20150626
  2. REFRESH                            /00880201/ [Concomitant]
     Indication: DRY EYE
     Dosage: 1 GTT, BID
     Route: 047

REACTIONS (1)
  - Paraesthesia oral [Not Recovered/Not Resolved]
